FAERS Safety Report 17317203 (Version 3)
Quarter: 2020Q2

REPORT INFORMATION
  Report Type: Spontaneous
  Country: US (occurrence: US)
  Receive Date: 20200124
  Receipt Date: 20200427
  Transmission Date: 20200713
  Serious: Yes (Hospitalization)
  Sender: FDA-Public Use
  Company Number: US-ASTRAZENECA-2020SE11554

PATIENT
  Age: 1 Year
  Sex: Female

DRUGS (4)
  1. SYNAGIS [Suspect]
     Active Substance: PALIVIZUMAB
     Indication: ATRIOVENTRICULAR BLOCK SECOND DEGREE
     Route: 030
  2. ENALAPRIL MALEATE. [Concomitant]
     Active Substance: ENALAPRIL MALEATE
  3. SYNAGIS [Suspect]
     Active Substance: PALIVIZUMAB
     Indication: ATRIOVENTRICULAR BLOCK SECOND DEGREE
     Route: 030
  4. SYNAGIS [Suspect]
     Active Substance: PALIVIZUMAB
     Indication: ATRIOVENTRICULAR BLOCK SECOND DEGREE
     Route: 030

REACTIONS (7)
  - Coronavirus infection [Unknown]
  - Product dose omission [Unknown]
  - Hypoxia [Unknown]
  - Apnoeic attack [Unknown]
  - Pneumonia [Unknown]
  - Seizure [Unknown]
  - Bronchitis [Unknown]
